FAERS Safety Report 15001933 (Version 2)
Quarter: 2018Q3

REPORT INFORMATION
  Report Type: Spontaneous
  Country: CA (occurrence: CA)
  Receive Date: 20180612
  Receipt Date: 20180702
  Transmission Date: 20181010
  Serious: Yes (Disabling, Other)
  Sender: FDA-Public Use
  Company Number: CA-ENDO PHARMACEUTICALS INC-2018-037591

PATIENT
  Age: 61 Year
  Sex: Male

DRUGS (1)
  1. XIAFLEX [Suspect]
     Active Substance: COLLAGENASE CLOSTRIDIUM HISTOLYTICUM
     Indication: DUPUYTREN^S CONTRACTURE
     Dosage: UNK UNKNOWN, ONE INJECTION
     Route: 026
     Dates: start: 20180315

REACTIONS (6)
  - Swelling [Unknown]
  - Tendon rupture [Unknown]
  - Tenoplasty [Recovered/Resolved]
  - Impaired work ability [Not Recovered/Not Resolved]
  - Pain [Unknown]
  - Drug ineffective [Unknown]

NARRATIVE: CASE EVENT DATE: 2018
